FAERS Safety Report 21527468 (Version 1)
Quarter: 2022Q4

REPORT INFORMATION
  Report Type: Spontaneous
  Country: CA (occurrence: CA)
  Receive Date: 20221031
  Receipt Date: 20221031
  Transmission Date: 20230113
  Serious: Yes (Other)
  Sender: FDA-Public Use
  Company Number: None

PATIENT
  Age: 47 Year
  Sex: Female

DRUGS (3)
  1. METHOTREXATE [Suspect]
     Active Substance: METHOTREXATE
     Indication: Psoriatic arthropathy
     Route: 048
  2. HUMIRA [Suspect]
     Active Substance: ADALIMUMAB
     Indication: Psoriatic arthropathy
     Route: 058
  3. LEFLUNOMIDE [Concomitant]
     Active Substance: LEFLUNOMIDE
     Indication: Product used for unknown indication

REACTIONS (11)
  - Back pain [Unknown]
  - Costochondritis [Unknown]
  - Dactylitis [Unknown]
  - Fibromyalgia [Unknown]
  - Gastric bypass [Unknown]
  - Hepatic enzyme increased [Unknown]
  - Hypertension [Unknown]
  - Nail psoriasis [Unknown]
  - Non-alcoholic fatty liver [Unknown]
  - Psoriasis [Unknown]
  - Unevaluable event [Unknown]
